FAERS Safety Report 8121172 (Version 6)
Quarter: 2013Q1

REPORT INFORMATION
  Report Type: Report from Study
  Country: NO (occurrence: NO)
  Receive Date: 20110906
  Receipt Date: 20130115
  Transmission Date: 20140127
  Serious: Yes (Hospitalization)
  Sender: FDA-Public Use
  Company Number: PHHO2011NO14507

PATIENT
  Sex: Male

DRUGS (9)
  1. AMN107 [Suspect]
     Indication: GASTROINTESTINAL STROMAL TUMOUR
     Dosage: 400 MG, BID
     Dates: start: 20110317, end: 20110824
  2. GLIMEPIRIDE [Concomitant]
     Dosage: 2 MG, QD
  3. METFORMIN [Concomitant]
     Dosage: 1000 MG, BID
  4. APROVEL [Concomitant]
     Dosage: 300 MG, QD
  5. NEXIUM [Concomitant]
     Dosage: 40 MG, QD
  6. OXIS [Concomitant]
  7. AEROBEC [Concomitant]
  8. BRICANYL [Concomitant]
  9. ANTIHYPERTENSIVES [Concomitant]

REACTIONS (1)
  - Myocardial infarction [Recovered/Resolved]
